FAERS Safety Report 23425996 (Version 4)
Quarter: 2024Q1

REPORT INFORMATION
  Report Type: Report from Study
  Country: CA (occurrence: CA)
  Receive Date: 20240122
  Receipt Date: 20240227
  Transmission Date: 20240410
  Serious: Yes (Hospitalization, Other)
  Sender: FDA-Public Use
  Company Number: CA-GLAXOSMITHKLINE-CA2023181135

PATIENT

DRUGS (6)
  1. BELIMUMAB [Suspect]
     Active Substance: BELIMUMAB
     Indication: Systemic lupus erythematosus
     Dosage: 10 MG/KG,Q4W
     Route: 042
     Dates: start: 20151110
  2. BELIMUMAB [Suspect]
     Active Substance: BELIMUMAB
     Dosage: 900 MG, Q4W
     Route: 042
  3. BELIMUMAB [Suspect]
     Active Substance: BELIMUMAB
     Indication: Systemic lupus erythematosus
     Dosage: 10 MG/KG, Q4W
     Dates: start: 20151110
  4. BELIMUMAB [Suspect]
     Active Substance: BELIMUMAB
     Dosage: 10 MG/KG, Q4W
     Dates: start: 20151110
  5. BELIMUMAB [Suspect]
     Active Substance: BELIMUMAB
     Dosage: 10 MG/KG, Q4W
     Dates: start: 20151110
  6. WARFARIN [Suspect]
     Active Substance: WARFARIN
     Indication: Cerebrovascular accident
     Dosage: UNK

REACTIONS (4)
  - Cerebrovascular accident [Not Recovered/Not Resolved]
  - Hemiparesis [Not Recovered/Not Resolved]
  - Product dose omission issue [Unknown]
  - Inappropriate schedule of product administration [Unknown]

NARRATIVE: CASE EVENT DATE: 20231201
